FAERS Safety Report 9424790 (Version 1)
Quarter: 2013Q3

REPORT INFORMATION
  Report Type: Report from Study
  Country: CA (occurrence: CA)
  Receive Date: 20130729
  Receipt Date: 20130729
  Transmission Date: 20140515
  Serious: Yes (Other)
  Sender: FDA-Public Use
  Company Number: CA-JNJFOC-20130713758

PATIENT
  Age: 56 Year
  Sex: Female
  Weight: 62 kg

DRUGS (15)
  1. REMICADE [Suspect]
     Indication: CROHN^S DISEASE
     Route: 042
     Dates: start: 201305
  2. REMICADE [Suspect]
     Indication: CROHN^S DISEASE
     Route: 042
     Dates: start: 2005
  3. LAXADAY [Concomitant]
     Route: 065
  4. DEXILANT [Concomitant]
     Route: 065
  5. ASA [Concomitant]
     Route: 065
  6. VALSARTAN [Concomitant]
     Route: 065
  7. EFFIENT [Concomitant]
     Route: 065
  8. CITALOPRAM [Concomitant]
     Route: 065
  9. MTX [Concomitant]
     Route: 065
  10. PREMARIN [Concomitant]
     Route: 065
  11. PROVERA [Concomitant]
     Route: 065
  12. LIPITOR [Concomitant]
     Route: 065
  13. LYRICA [Concomitant]
     Route: 065
  14. XANAX [Concomitant]
     Route: 065
  15. FOLIC ACID [Concomitant]
     Route: 065

REACTIONS (3)
  - Infarction [Unknown]
  - Arthralgia [Unknown]
  - Dizziness [Unknown]
